FAERS Safety Report 6025050-3 (Version None)
Quarter: 2008Q4

REPORT INFORMATION
  Report Type: 
  Country: None (occurrence: None)
  Receive Date: 20081230
  Receipt Date: 20081230
  Transmission Date: 20090506
  Serious: Yes (Other)
  Sender: FDA-Public Use
  Company Number: None

PATIENT
  Sex: Female
  Weight: 77.5651 kg

DRUGS (1)
  1. MIRENA [Suspect]
     Indication: CONTRACEPTION
     Dosage: DAILY INTRA-UTERINE
     Route: 015
     Dates: start: 20071110, end: 20081229

REACTIONS (11)
  - ABDOMINAL DISTENSION [None]
  - ACNE [None]
  - ANGER [None]
  - ANXIETY [None]
  - BREAST DISCOMFORT [None]
  - DRUG INEFFECTIVE [None]
  - FATIGUE [None]
  - HYPERTENSION [None]
  - MOOD SWINGS [None]
  - STRESS [None]
  - WEIGHT FLUCTUATION [None]
